FAERS Safety Report 5024950-0 (Version None)
Quarter: 2006Q2

REPORT INFORMATION
  Report Type: 
  Country: None (occurrence: None)
  Receive Date: 20060607
  Receipt Date: 20060523
  Transmission Date: 20061013
  Serious: Yes (Hospitalization)
  Sender: FDA-Public Use
  Company Number: GXKR2006GB02915

PATIENT
  Age: 67 Year
  Sex: Female

DRUGS (7)
  1. ASPIRIN [Suspect]
  2. ENOXAPARIN (ENOXAPARIN, HEPARIN-FRACTION) [Suspect]
  3. LEVOTHYROXINE SODIUM [Concomitant]
  4. METOPROLOL SUCCINATE [Concomitant]
  5. SIMVASTATIN [Concomitant]
  6. FUROSEMIDE [Concomitant]
  7. GLYCEROLTRINITRAT (GLYCERYL TRINITRATE) [Concomitant]

REACTIONS (10)
  - ABDOMINAL HAEMATOMA [None]
  - ABDOMINAL PAIN LOWER [None]
  - ARTERIAL RUPTURE [None]
  - HAEMOGLOBIN DECREASED [None]
  - INTERNATIONAL NORMALISED RATIO DECREASED [None]
  - MOOD ALTERED [None]
  - MUSCLE HAEMORRHAGE [None]
  - PALLOR [None]
  - PELVIC HAEMATOMA [None]
  - TACHYCARDIA [None]
